FAERS Safety Report 7711467-5 (Version None)
Quarter: 2011Q3

REPORT INFORMATION
  Report Type: 
  Country: None (occurrence: None)
  Receive Date: 20110823
  Receipt Date: 20110810
  Transmission Date: 20111222
  Serious: Yes (Other)
  Sender: FDA-Public Use
  Company Number: 2011184375

PATIENT

DRUGS (1)
  1. FRAGMIN [Suspect]
     Dosage: 10000 IU/ML

REACTIONS (3)
  - HYPERSENSITIVITY [None]
  - FLUSHING [None]
  - DYSPNOEA [None]
